FAERS Safety Report 21355193 (Version 3)
Quarter: 2022Q4

REPORT INFORMATION
  Report Type: Report from Study
  Country: US (occurrence: US)
  Receive Date: 20220920
  Receipt Date: 20221212
  Transmission Date: 20230113
  Serious: Yes (Other)
  Sender: FDA-Public Use
  Company Number: US-BRISTOL-MYERS SQUIBB COMPANY-2022-107623

PATIENT
  Age: 66 Year
  Sex: Female

DRUGS (1)
  1. ABECMA [Suspect]
     Active Substance: IDECABTAGENE VICLEUCEL
     Indication: Plasma cell myeloma

REACTIONS (7)
  - Neurotoxicity [Unknown]
  - Immunodeficiency [Unknown]
  - Cytokine release syndrome [Unknown]
  - Diarrhoea [Unknown]
  - Hypotension [Unknown]
  - Hypertension [Unknown]
  - Anaemia [Unknown]
